FAERS Safety Report 18865679 (Version 1)
Quarter: 2021Q1

REPORT INFORMATION
  Report Type: Spontaneous
  Country: US (occurrence: US)
  Receive Date: 20210208
  Receipt Date: 20210208
  Transmission Date: 20210420
  Serious: No
  Sender: FDA-Public Use
  Company Number: None

PATIENT
  Age: 39 Year
  Sex: Female

DRUGS (9)
  1. CAPECITABINE, 500MG [Suspect]
     Active Substance: CAPECITABINE
     Indication: BREAST CANCER
     Route: 048
     Dates: start: 20210119
  2. VIMPAT [Concomitant]
     Active Substance: LACOSAMIDE
  3. NAMENDA [Concomitant]
     Active Substance: MEMANTINE HYDROCHLORIDE
  4. CARVEDILOL. [Concomitant]
     Active Substance: CARVEDILOL
  5. MAG OXIDE [Concomitant]
     Active Substance: MAGNESIUM OXIDE
  6. POTASSIUM [Concomitant]
     Active Substance: POTASSIUM
  7. VITAMIN D [Concomitant]
     Active Substance: VITAMIN D NOS
  8. PANTOPRAZOLE [Concomitant]
     Active Substance: PANTOPRAZOLE
  9. DEXAMETHASONE. [Concomitant]
     Active Substance: DEXAMETHASONE

REACTIONS (1)
  - Tachycardia [None]

NARRATIVE: CASE EVENT DATE: 20210208
